FAERS Safety Report 21390732 (Version 5)
Quarter: 2023Q1

REPORT INFORMATION
  Report Type: Spontaneous
  Country: US (occurrence: US)
  Receive Date: 20220929
  Receipt Date: 20230112
  Transmission Date: 20230418
  Serious: Yes (Other)
  Sender: FDA-Public Use
  Company Number: US-PFIZER INC-PV202200073366

PATIENT
  Age: 74 Year
  Sex: Female

DRUGS (1)
  1. IBRANCE [Suspect]
     Active Substance: PALBOCICLIB
     Dosage: UNK

REACTIONS (6)
  - Pneumonia [Unknown]
  - Fatigue [Unknown]
  - Abdominal distension [Unknown]
  - Malaise [Recovering/Resolving]
  - Stress [Unknown]
  - Alopecia [Unknown]
